FAERS Safety Report 19390005 (Version 2)
Quarter: 2021Q3

REPORT INFORMATION
  Report Type: Report from Study
  Country: None (occurrence: US)
  Receive Date: 20210608
  Receipt Date: 20210713
  Transmission Date: 20211014
  Serious: Yes (Other)
  Sender: FDA-Public Use
  Company Number: US-ABBVIE-21K-163-3939867-00

PATIENT
  Sex: Female
  Weight: 124.85 kg

DRUGS (2)
  1. RINVOQ [Suspect]
     Active Substance: UPADACITINIB
     Indication: RHEUMATOID ARTHRITIS
     Route: 048
     Dates: start: 201901, end: 202105
  2. RINVOQ [Suspect]
     Active Substance: UPADACITINIB
     Route: 048
     Dates: start: 20210511

REACTIONS (5)
  - Pain [Recovering/Resolving]
  - Discomfort [Recovering/Resolving]
  - Cubital tunnel syndrome [Recovering/Resolving]
  - Hypoaesthesia [Recovering/Resolving]
  - Carpal tunnel syndrome [Recovering/Resolving]

NARRATIVE: CASE EVENT DATE: 2020
